FAERS Safety Report 5764346-7 (Version None)
Quarter: 2008Q2

REPORT INFORMATION
  Report Type: 
  Country: None (occurrence: None)
  Receive Date: 20080610
  Receipt Date: 20080514
  Transmission Date: 20081010
  Serious: No
  Sender: FDA-Public Use
  Company Number: US-BOEHRINGER INGELHEIM GMBH, GERMANY-2008-BP-07615BP

PATIENT
  Age: 79 Year
  Sex: Female
  Weight: 96 kg

DRUGS (15)
  1. MIRAPEX [Suspect]
     Indication: RESTLESS LEGS SYNDROME
     Route: 048
     Dates: start: 20080415
  2. NORVASC [Concomitant]
  3. DIOVAN [Concomitant]
  4. ZOLOFT [Concomitant]
  5. VYTORIN [Concomitant]
  6. TOPROL-XL [Concomitant]
  7. PLAVIX [Concomitant]
  8. ASPIRIN [Concomitant]
  9. ASMANEX TWISTHALER [Concomitant]
  10. ALBUTEROL [Concomitant]
  11. XALATAN [Concomitant]
  12. FAMOTIDINE [Concomitant]
     Dates: start: 20080415
  13. ADVAIR DISKUS 100/50 [Concomitant]
  14. NASONEX [Concomitant]
     Dates: start: 20080415
  15. MULTI-VITAMIN [Concomitant]

REACTIONS (2)
  - HALLUCINATION [None]
  - VISUAL DISTURBANCE [None]
